FAERS Safety Report 8407475 (Version 2)
Quarter: 2013Q2

REPORT INFORMATION
  Report Type: Spontaneous
  Country: US (occurrence: None)
  Receive Date: 20111227
  Receipt Date: 20120426
  Transmission Date: 20140414
  Serious: Yes (Other)
  Sender: FDA-Public Use
  Company Number: PHEH2011US06651

PATIENT
  Age: 35 Year
  Sex: Female

DRUGS (1)
  1. GILENYA [Suspect]
     Indication: MULTIPLE SCLEROSIS
     Dosage: 0.5 MG, QD, ORAL
     Route: 048
     Dates: start: 20111010

REACTIONS (9)
  - NASAL CONGESTION [None]
  - HEADACHE [None]
  - DIZZINESS [None]
  - GASTROENTERITIS VIRAL [None]
  - COUGH [None]
  - INFLUENZA LIKE ILLNESS [None]
  - Decreased appetite [None]
  - Aphthous stomatitis [None]
  - Gingival swelling [None]
